FAERS Safety Report 8481032-3 (Version None)
Quarter: 2012Q3

REPORT INFORMATION
  Report Type: 
  Country: None (occurrence: None)
  Receive Date: 20120702
  Receipt Date: 20120620
  Transmission Date: 20120928
  Serious: Yes (Hospitalization, Other)
  Sender: FDA-Public Use
  Company Number: PHEH2011US012762

PATIENT
  Sex: Male

DRUGS (2)
  1. GLEEVEC [Suspect]
     Indication: GASTROINTESTINAL STROMAL TUMOUR
     Dosage: 400 MG, DAILY
     Route: 048
     Dates: start: 20111229
  2. LASIX [Suspect]

REACTIONS (5)
  - DISEASE COMPLICATION [None]
  - MALAISE [None]
  - FALL [None]
  - DEAFNESS [None]
  - DEHYDRATION [None]
